FAERS Safety Report 4462325-3 (Version None)
Quarter: 2004Q3

REPORT INFORMATION
  Report Type: 
  Country: None (occurrence: None)
  Receive Date: 20040924
  Receipt Date: 20040910
  Transmission Date: 20050211
  Serious: Yes (Hospitalization, Other)
  Sender: FDA-Public Use
  Company Number: 2004S1002707

PATIENT
  Age: 76 Year
  Sex: Male
  Weight: 58.9676 kg

DRUGS (4)
  1. APOKYN [Suspect]
     Indication: PARKINSON'S DISEASE
     Dosage: 2 MG, ONE DOSE, SUBCUTANEOUS
     Route: 058
     Dates: start: 20040909, end: 20040909
  2. CARBIDOPA AND LEVODOPA [Concomitant]
  3. ROPINIROLE [Concomitant]
  4. ENTACAPONE [Concomitant]

REACTIONS (4)
  - ASTHENIA [None]
  - CHEST PAIN [None]
  - CHEST X-RAY ABNORMAL [None]
  - DRUG EFFECT DECREASED [None]
